FAERS Safety Report 5801658-2 (Version None)
Quarter: 2008Q3

REPORT INFORMATION
  Report Type: 
  Country: None (occurrence: None)
  Receive Date: 20080707
  Receipt Date: 20080627
  Transmission Date: 20090109
  Serious: Yes (Other)
  Sender: FDA-Public Use
  Company Number: B0485578A

PATIENT
  Age: 31 Year
  Sex: Female

DRUGS (2)
  1. MALARONE [Suspect]
     Indication: MALARIA PROPHYLAXIS
     Dosage: 250MG PER DAY
     Route: 048
     Dates: start: 20070711, end: 20070830
  2. TYPHIM VI [Concomitant]
     Indication: PROPHYLAXIS
     Dates: start: 20070628, end: 20070628

REACTIONS (2)
  - DRUG EXPOSURE DURING PREGNANCY [None]
  - INTRA-UTERINE DEATH [None]
